FAERS Safety Report 6340517-6 (Version None)
Quarter: 2009Q3

REPORT INFORMATION
  Report Type: 
  Country: None (occurrence: None)
  Receive Date: 20090904
  Receipt Date: 20090828
  Transmission Date: 20100115
  Serious: Yes (Other)
  Sender: FDA-Public Use
  Company Number: US-JNJFOC-20090901554

PATIENT
  Age: 40 Year
  Sex: Male

DRUGS (2)
  1. FENTANYL [Suspect]
     Indication: INTENTIONAL DRUG MISUSE
     Route: 065
  2. HEROIN [Suspect]
     Indication: INTENTIONAL DRUG MISUSE
     Route: 065

REACTIONS (3)
  - INTENTIONAL DRUG MISUSE [None]
  - OXYGEN SATURATION DECREASED [None]
  - UNRESPONSIVE TO STIMULI [None]
